FAERS Safety Report 6220401-9 (Version None)
Quarter: 2009Q2

REPORT INFORMATION
  Report Type: 
  Country: None (occurrence: None)
  Receive Date: 20090610
  Receipt Date: 20090528
  Transmission Date: 20091009
  Serious: Yes (Death, Life-Threatening, Hospitalization)
  Sender: FDA-Public Use
  Company Number: IT-ELI_LILLY_AND_COMPANY-IT200811004081

PATIENT
  Sex: Male
  Weight: 64 kg

DRUGS (4)
  1. DULOXETINE HYDROCHLORIDE [Suspect]
     Indication: DEPRESSION
     Dosage: 30 MG, DAILY (1/D)
     Route: 048
     Dates: start: 20081030, end: 20081118
  2. DULOXETINE HYDROCHLORIDE [Suspect]
     Dosage: 60 MG, DAILY (1/D)
     Route: 048
     Dates: start: 20081106, end: 20081118
  3. L-DOPA [Concomitant]
     Indication: PARKINSON'S DISEASE
     Dosage: UNK, UNKNOWN
     Route: 065
     Dates: start: 20050101
  4. ALFUZOSIN HYDROCHLORIDE [Concomitant]
     Indication: BENIGN PROSTATIC HYPERPLASIA
     Dosage: UNK, UNKNOWN
     Route: 065
     Dates: start: 20080928

REACTIONS (9)
  - DECUBITUS ULCER [None]
  - DYSPNOEA [None]
  - MYOPATHY [None]
  - PNEUMONIA [None]
  - PULMONARY EMBOLISM [None]
  - PYREXIA [None]
  - RENAL FAILURE ACUTE [None]
  - SEPSIS [None]
  - URINARY RETENTION [None]
